FAERS Safety Report 8004911-X (Version None)
Quarter: 2011Q4

REPORT INFORMATION
  Report Type: 
  Country: None (occurrence: None)
  Receive Date: 20111219
  Receipt Date: 20111208
  Transmission Date: 20120403
  Serious: Yes (Other)
  Sender: FDA-Public Use
  Company Number: 2011SP057891

PATIENT
  Age: 52 Year
  Sex: Female

DRUGS (3)
  1. PEG-INTRON [Suspect]
     Indication: HEPATITIS C
     Dosage: ;QW;SC
     Route: 058
     Dates: start: 20110922
  2. RIBAVIRIN [Suspect]
     Indication: HEPATITIS C
     Dosage: ;QD;PO
     Route: 048
     Dates: start: 20110922
  3. BOCEPREVIR (SCH-503034) [Suspect]
     Indication: HEPATITIS C
     Dosage: 800 MG;TID;PO
     Route: 048
     Dates: start: 20111027

REACTIONS (3)
  - VOMITING [None]
  - DIARRHOEA [None]
  - RENAL FAILURE ACUTE [None]
